FAERS Safety Report 8237727-X (Version None)
Quarter: 2012Q1

REPORT INFORMATION
  Report Type: 
  Country: None (occurrence: None)
  Receive Date: 20120326
  Receipt Date: 20120308
  Transmission Date: 20120608
  Serious: Yes (Other)
  Sender: FDA-Public Use
  Company Number: 2012SP013633

PATIENT
  Sex: Male

DRUGS (1)
  1. DULERA ORAL INHALATION [Suspect]
     Dosage: INH
     Route: 055

REACTIONS (1)
  - APHONIA [None]
